FAERS Safety Report 9240715 (Version 1)
Quarter: 2013Q2

REPORT INFORMATION
  Report Type: Spontaneous
  Country: IT (occurrence: IT)
  Receive Date: 20130418
  Receipt Date: 20130418
  Transmission Date: 20140414
  Serious: Yes (Hospitalization)
  Sender: FDA-Public Use
  Company Number: IT-BAYER-2013-048949

PATIENT
  Age: 72 Year
  Sex: Male

DRUGS (2)
  1. CARDIOASPIRIN [Suspect]
     Dosage: 100 MG, QD
     Route: 048
     Dates: start: 20120101, end: 20130318
  2. SIMVASTATIN [Concomitant]
     Dosage: UNK

REACTIONS (6)
  - Gastric haemorrhage [Recovering/Resolving]
  - Asthenia [Unknown]
  - Faeces discoloured [Unknown]
  - Malaise [Unknown]
  - Hyperhidrosis [Unknown]
  - Anaemia [Recovering/Resolving]
